FAERS Safety Report 14804650 (Version 7)
Quarter: 2022Q3

REPORT INFORMATION
  Report Type: Report from Study
  Country: GB (occurrence: GB)
  Receive Date: 20180425
  Receipt Date: 20220906
  Transmission Date: 20221027
  Serious: Yes (Hospitalization, Other)
  Sender: FDA-Public Use
  Company Number: GB-009507513-1707GBR008573

PATIENT
  Age: 77 Year
  Sex: Male
  Weight: 104 kg

DRUGS (30)
  1. BORTEZOMIB [Suspect]
     Active Substance: BORTEZOMIB
     Indication: Plasma cell myeloma
     Dosage: 1.3 MILLIGRAM/SQ. METER
     Route: 058
     Dates: start: 20170519, end: 20170530
  2. BORTEZOMIB [Suspect]
     Active Substance: BORTEZOMIB
     Dosage: 1.3 MILLIGRAM/SQ. METER
     Route: 058
     Dates: start: 20170616, end: 20170619
  3. BORTEZOMIB [Suspect]
     Active Substance: BORTEZOMIB
     Dosage: 3 MILLIGRAM
     Route: 058
     Dates: start: 20170519, end: 20170619
  4. VENETOCLAX [Suspect]
     Active Substance: VENETOCLAX
     Indication: Plasma cell myeloma
     Dosage: 800 MILLIGRAM, QD
     Route: 048
     Dates: start: 20170519, end: 20170608
  5. VENETOCLAX [Suspect]
     Active Substance: VENETOCLAX
     Dosage: 800 MILLIGRAM, QD
     Route: 048
     Dates: start: 20170616, end: 20170622
  6. DEXAMETHASONE [Suspect]
     Active Substance: DEXAMETHASONE
     Indication: Plasma cell myeloma
     Dosage: 20 MILLIGRAM
     Route: 048
     Dates: start: 20170519, end: 20170531
  7. DEXAMETHASONE [Suspect]
     Active Substance: DEXAMETHASONE
     Dosage: 20 MILLIGRAM
     Route: 048
     Dates: start: 20170616, end: 20170620
  8. CLOPIDOGREL [Concomitant]
     Active Substance: CLOPIDOGREL BISULFATE
     Indication: Anticoagulant therapy
     Dosage: 75 MILLIGRAM, QD
     Route: 048
     Dates: start: 2015, end: 201708
  9. BISOPROLOL [Concomitant]
     Active Substance: BISOPROLOL
     Indication: Hypertension
     Dosage: 5 MILLIGRAM, QD
     Route: 048
     Dates: start: 2015, end: 201708
  10. CALCIUM\CHOLECALCIFEROL [Concomitant]
     Active Substance: CALCIUM\CHOLECALCIFEROL
     Indication: Vitamin supplementation
     Dosage: 1.5 MILLIGRAM, QD
     Route: 048
     Dates: start: 2015
  11. ATORVASTATIN [Concomitant]
     Active Substance: ATORVASTATIN
     Indication: Hyperlipidaemia
     Dosage: 10 MILLIGRAM, QD
     Route: 048
     Dates: start: 2015, end: 201708
  12. ATORVASTATIN [Concomitant]
     Active Substance: ATORVASTATIN
     Indication: Hypertension
     Dosage: 10 MILLIGRAM, QD
     Route: 048
     Dates: start: 2015, end: 201708
  13. FUROSEMIDE [Concomitant]
     Active Substance: FUROSEMIDE
     Indication: Hypertension
     Dosage: 40 MILLIGRAM, QD
     Route: 048
     Dates: start: 2015, end: 20170823
  14. FUROSEMIDE [Concomitant]
     Active Substance: FUROSEMIDE
     Dosage: 20 MILLIGRAM, QD
     Route: 048
     Dates: start: 20170712
  15. TAMSULOSIN [Concomitant]
     Active Substance: TAMSULOSIN
     Indication: Urinary retention
     Dosage: 400 MICROGRAM, QD
     Route: 048
     Dates: start: 2015
  16. TAMSULOSIN [Concomitant]
     Active Substance: TAMSULOSIN
     Indication: Chronic kidney disease
     Dosage: 400 MICROGRAM, QD
     Route: 048
     Dates: start: 2015
  17. DOXAZOSIN MESYLATE [Concomitant]
     Active Substance: DOXAZOSIN MESYLATE
     Indication: Hypertension
     Dosage: 2 MILLIGRAM, QD
     Route: 048
     Dates: start: 2015, end: 20170623
  18. OMEPRAZOLE [Concomitant]
     Active Substance: OMEPRAZOLE
     Indication: Prophylaxis against gastrointestinal ulcer
     Dosage: 20 MILLIGRAM, QD
     Route: 048
     Dates: start: 2015
  19. ZOLEDRONIC ACID [Concomitant]
     Active Substance: ZOLEDRONIC ACID
     Indication: Osteoporosis
     Dosage: 4 MILLIGRAM, Q4WEEKS
     Route: 042
     Dates: start: 2015
  20. ALLOPURINOL [Concomitant]
     Active Substance: ALLOPURINOL
     Indication: Palliative care
     Dosage: 300 MILLIGRAM, QD
     Route: 048
     Dates: start: 20170421
  21. COCODAMOL [Concomitant]
     Active Substance: ACETAMINOPHEN\CODEINE PHOSPHATE
     Indication: Analgesic therapy
     Dosage: UNK
     Route: 048
     Dates: start: 2015
  22. ARANESP [Concomitant]
     Active Substance: DARBEPOETIN ALFA
     Indication: Anaemia
     Dosage: UNK UNK, Q4WEEKS
     Route: 058
     Dates: start: 20170419
  23. ARANESP [Concomitant]
     Active Substance: DARBEPOETIN ALFA
     Indication: Chronic kidney disease
  24. COTRIMOXAZOLE [Concomitant]
     Active Substance: SULFAMETHOXAZOLE\TRIMETHOPRIM
     Indication: Palliative care
     Dosage: 480 MILLIGRAM, QD
     Route: 048
     Dates: start: 20170519
  25. ACYCLOVIR [Concomitant]
     Active Substance: ACYCLOVIR
     Indication: Palliative care
     Dosage: 400 MILLIGRAM, BID
     Route: 048
     Dates: start: 20170421
  26. METOCLOPRAMIDE [Concomitant]
     Active Substance: METOCLOPRAMIDE
     Indication: Prophylaxis of nausea and vomiting
     Dosage: 10 MILLIGRAM
     Route: 048
     Dates: start: 20170516
  27. METOCLOPRAMIDE [Concomitant]
     Active Substance: METOCLOPRAMIDE
     Indication: Prophylaxis of nausea and vomiting
  28. METOCLOPRAMIDE [Concomitant]
     Active Substance: METOCLOPRAMIDE
     Indication: Nausea
  29. METOCLOPRAMIDE [Concomitant]
     Active Substance: METOCLOPRAMIDE
     Indication: Vomiting
  30. SODIUM CHLORIDE [Concomitant]
     Active Substance: SODIUM CHLORIDE
     Indication: Tumour lysis syndrome
     Dosage: UNK
     Dates: start: 20170523, end: 20170530

REACTIONS (10)
  - Fall [Not Recovered/Not Resolved]
  - Diarrhoea [Recovered/Resolved]
  - Pneumonia [Recovered/Resolved]
  - Presyncope [Not Recovered/Not Resolved]
  - Dizziness [Not Recovered/Not Resolved]
  - Syncope [Recovered/Resolved]
  - Peripheral swelling [Unknown]
  - Social problem [Recovered/Resolved]
  - Toxicity to various agents [Recovered/Resolved]
  - Neuropathy peripheral [Recovered/Resolved]

NARRATIVE: CASE EVENT DATE: 20170531
